FAERS Safety Report 5673931-2 (Version None)
Quarter: 2008Q2

REPORT INFORMATION
  Report Type: 
  Country: None (occurrence: None)
  Receive Date: 20080228
  Receipt Date: 20070130
  Transmission Date: 20081010
  Serious: Yes (Other)
  Sender: FDA-Public Use
  Company Number: US200701003434

PATIENT
  Age: 53 Year
  Sex: Female
  Weight: 108.6 kg

DRUGS (24)
  1. SYMBYAX [Suspect]
     Indication: BIPOLAR I DISORDER
     Dosage: DAILY (1/D)
  2. BUPROPION HCL [Concomitant]
  3. CALTRATE (CALCIUM, VITAMIN D NOS) [Concomitant]
  4. COLACE (DOCUSATE SODIUM) [Concomitant]
  5. LISINOPRIL [Concomitant]
  6. FLONASE [Concomitant]
  7. LORTAB [Concomitant]
  8. NEXIUM [Concomitant]
  9. TOPAMAX [Concomitant]
  10. ZOCOR [Concomitant]
  11. ZETIA [Concomitant]
  12. AMITRIPTLINE HCL [Concomitant]
  13. ASPIRIN [Concomitant]
  14. CLARITIN [Concomitant]
  15. TRIAMTERENE (TRIAMTERENE) [Concomitant]
  16. HYDROCHLOROTHIAZIDE [Concomitant]
  17. BUPAP (BUTALBITAL, PARACETAMOL) [Concomitant]
  18. SINGULAIR [Concomitant]
  19. NICOTROL [Concomitant]
  20. QUININE SULFATE (QUININE SULFATE) [Concomitant]
  21. LASIX [Concomitant]
  22. POTASSIUM (POTASSIUM) [Concomitant]
  23. FLEXERIL [Concomitant]
  24. CLONOPIN [Concomitant]

REACTIONS (1)
  - BLOOD GLUCOSE INCREASED [None]
